FAERS Safety Report 14237497 (Version 1)
Quarter: 2017Q4

REPORT INFORMATION
  Report Type: Spontaneous
  Country: US (occurrence: US)
  Receive Date: 20171129
  Receipt Date: 20171129
  Transmission Date: 20180321
  Serious: No
  Sender: FDA-Public Use
  Company Number: US-AMNEAL PHARMACEUTICALS-2017AMN00710

PATIENT
  Sex: Male

DRUGS (1)
  1. RANITIDINE. [Suspect]
     Active Substance: RANITIDINE
     Indication: HYPERCHLORHYDRIA
     Route: 048

REACTIONS (1)
  - Drug ineffective [Recovered/Resolved]

NARRATIVE: CASE EVENT DATE: 20170507
